FAERS Safety Report 7214845-6 (Version None)
Quarter: 2011Q1

REPORT INFORMATION
  Report Type: 
  Country: None (occurrence: None)
  Receive Date: 20110107
  Receipt Date: 20100402
  Transmission Date: 20110831
  Serious: No
  Sender: FDA-Public Use
  Company Number: A0853211A

PATIENT
  Age: 71 Year
  Sex: Male

DRUGS (9)
  1. FINASTERIDE [Concomitant]
  2. ALLOPURINOL [Concomitant]
  3. DOXAZOSIN MESYLATE [Concomitant]
  4. MULTI-VITAMIN [Concomitant]
  5. LOVAZA [Suspect]
     Dosage: 1CAP TWICE PER DAY
     Route: 048
     Dates: start: 20100302, end: 20100326
  6. SIMVASTATIN [Concomitant]
  7. ASPIRIN [Concomitant]
  8. RANITIDINE [Concomitant]
  9. CARVEDILOL [Concomitant]

REACTIONS (2)
  - FLATULENCE [None]
  - ABDOMINAL PAIN LOWER [None]
